FAERS Safety Report 5375657-1 (Version None)
Quarter: 2007Q2

REPORT INFORMATION
  Report Type: 
  Country: None (occurrence: None)
  Receive Date: 20070628
  Receipt Date: 20070613
  Transmission Date: 20071010
  Serious: Yes (Other)
  Sender: FDA-Public Use
  Company Number: 07-001325

PATIENT
  Age: 11 Year
  Sex: Female

DRUGS (2)
  1. ERYC [Suspect]
     Indication: INFECTION
     Dosage: 250 MG, QID; ORAL
     Route: 048
  2. THEOPHYLLINE [Suspect]
     Dosage: 300 MG, TID; ORAL
     Route: 048

REACTIONS (3)
  - CONVULSION [None]
  - DRUG CLEARANCE DECREASED [None]
  - DRUG INTERACTION [None]
